FAERS Safety Report 9786153 (Version 1)
Quarter: 2013Q4

REPORT INFORMATION
  Report Type: Spontaneous
  Country: FI (occurrence: FI)
  Receive Date: 20131227
  Receipt Date: 20131227
  Transmission Date: 20140711
  Serious: Yes (Hospitalization)
  Sender: FDA-Public Use
  Company Number: FI-BAYER-2013-155284

PATIENT
  Sex: Female
  Weight: 2.14 kg

DRUGS (2)
  1. QLAIRA [Suspect]
     Dosage: UNK
     Route: 064
     Dates: end: 201308
  2. QLAIRA [Suspect]
     Dosage: UNK
     Route: 064
     Dates: end: 201308

REACTIONS (3)
  - Low birth weight baby [None]
  - Haemoglobin increased [None]
  - Blood glucose fluctuation [None]
